FAERS Safety Report 10039919 (Version 1)
Quarter: 2014Q1

REPORT INFORMATION
  Report Type: Spontaneous
  Country: US (occurrence: US)
  Receive Date: 20140326
  Receipt Date: 20140326
  Transmission Date: 20141002
  Serious: Yes (Other)
  Sender: FDA-Public Use
  Company Number: US-PFIZER INC-2014083435

PATIENT
  Age: 77 Year
  Sex: Male
  Weight: 104 kg

DRUGS (8)
  1. LYRICA [Suspect]
     Indication: DIABETIC NEUROPATHY
     Dosage: 150 MG (BY TAKING 3 DOSES OF 50MG), IN A DAY
  2. RAMIPRIL [Concomitant]
     Dosage: UNK
  3. SOTALOL [Concomitant]
     Dosage: UNK
  4. SIMVASTATIN [Concomitant]
     Dosage: UNK
  5. JANUVIA [Concomitant]
     Dosage: UNK
  6. TAMSULOSIN [Concomitant]
     Dosage: UNK
  7. WARFARIN [Concomitant]
     Dosage: UNK
  8. AMBIEN [Concomitant]
     Dosage: UNK

REACTIONS (2)
  - Lung neoplasm malignant [Unknown]
  - Platelet count decreased [Unknown]
